FAERS Safety Report 16475928 (Version 2)
Quarter: 2019Q2

REPORT INFORMATION
  Report Type: Spontaneous
  Country: DE (occurrence: DE)
  Receive Date: 20190625
  Receipt Date: 20190626
  Transmission Date: 20190711
  Serious: Yes (Death, Congenital Anomaly, Other)
  Sender: FDA-Public Use
  Company Number: PHHY2019DE143341

PATIENT

DRUGS (2)
  1. OXCARBAZEPINE. [Suspect]
     Active Substance: OXCARBAZEPINE
     Indication: FOETAL EXPOSURE DURING PREGNANCY
     Dosage: MATERANAL DOSE: 3 OT QD (MAXIMUM SINGLE DOSE:600 MG)
     Route: 064
     Dates: start: 200209
  2. LEVETIRACETAM. [Suspect]
     Active Substance: LEVETIRACETAM
     Indication: FOETAL EXPOSURE DURING PREGNANCY
     Dosage: MATERANAL DOSE: 3 OT QD (MAXIMUM SINGLE DOSE:1000 MG)
     Route: 064
     Dates: start: 200206

REACTIONS (2)
  - Foetal disorder [Fatal]
  - Maternal exposure during pregnancy [Unknown]

NARRATIVE: CASE EVENT DATE: 2002
